FAERS Safety Report 21726574 (Version 2)
Quarter: 2023Q1

REPORT INFORMATION
  Report Type: Spontaneous
  Country: US (occurrence: US)
  Receive Date: 20221214
  Receipt Date: 20230207
  Transmission Date: 20230417
  Serious: No
  Sender: FDA-Public Use
  Company Number: US-SA-SAC20221212000350

PATIENT
  Sex: Female

DRUGS (1)
  1. DUPIXENT [Suspect]
     Active Substance: DUPILUMAB
     Indication: Dermatitis
     Dosage: 300 MG, QOW
     Route: 058

REACTIONS (2)
  - Bronchitis [Unknown]
  - Product use in unapproved indication [Unknown]
